FAERS Safety Report 11908003 (Version 2)
Quarter: 2021Q1

REPORT INFORMATION
  Report Type: Report from Study
  Country: US (occurrence: US)
  Receive Date: 20160111
  Receipt Date: 20210224
  Transmission Date: 20210419
  Serious: Yes (Hospitalization)
  Sender: FDA-Public Use
  Company Number: US-TEVA-623959USA

PATIENT
  Age: 50 Year
  Sex: Female
  Weight: 56.7 kg

DRUGS (7)
  1. PACLITAXEL. [Suspect]
     Active Substance: PACLITAXEL
     Indication: BREAST CANCER
     Dosage: DAY 1 OF 12 WEEKLY CYCLES DURING CHEMOTHERAPY SEGMENT 1 (80 MG/M2)
     Route: 042
     Dates: start: 20150722, end: 20150916
  2. PACLITAXEL. [Suspect]
     Active Substance: PACLITAXEL
     Dosage: DAY 1 OF 12 WEEKLY CYCLES DURING CHEMOTHERAPY SEGMENT 1 (60 MG/M2)
     Route: 042
     Dates: start: 20150722, end: 20150916
  3. CARBOPLATIN. [Suspect]
     Active Substance: CARBOPLATIN
     Indication: BREAST CANCER
     Route: 042
     Dates: start: 20150722
  4. PACLITAXEL. [Suspect]
     Active Substance: PACLITAXEL
     Dosage: DAY 1 OF 12 WEEKLY CYCLES DURING CHEMOTHERAPY SEGMENT 1 (70 MG/M2)
     Route: 042
     Dates: start: 20150722, end: 20150916
  5. CYCLOPHOSPHAMIDE. [Suspect]
     Active Substance: CYCLOPHOSPHAMIDE
     Indication: BREAST CANCER
     Dosage: DAY 1 OF FOUR 14?DAY CYCLES OR FOUR 21?DAY CYCLES DURING CHEMOTHERAPY SEGMENT 2 (996 MG,1 IN 14 D)
     Route: 042
     Dates: start: 20151014
  6. DOXORUBICIN [Suspect]
     Active Substance: DOXORUBICIN
     Indication: BREAST CANCER
     Dosage: DAY 1 OF FOUR 14?DAY CYCLES OR FOUR 21?DAY CYCLES DURING CHEMOTHERAPY SEGMENT 2 (99.6 MG,1 IN 14 D)
     Route: 042
     Dates: start: 20151014
  7. ABT?388 (VELIPARIB) (BLINDED) [Suspect]
     Active Substance: VELIPARIB
     Indication: BREAST CANCER
     Route: 048
     Dates: start: 20150722

REACTIONS (4)
  - Fatigue [Unknown]
  - Dyspnoea [Recovered/Resolved]
  - Dizziness [Recovered/Resolved]
  - Painful respiration [Recovered/Resolved]

NARRATIVE: CASE EVENT DATE: 20151119
